FAERS Safety Report 5335497-6 (Version None)
Quarter: 2007Q2

REPORT INFORMATION
  Report Type: 
  Country: None (occurrence: None)
  Receive Date: 20070525
  Receipt Date: 20070518
  Transmission Date: 20071010
  Serious: Yes (Other)
  Sender: FDA-Public Use
  Company Number: JP-PFIZER INC-2007040446

PATIENT
  Age: 55 Year
  Sex: Female

DRUGS (1)
  1. ZOLOFT [Suspect]
     Dosage: DAILY DOSE:50MG
     Route: 048
     Dates: start: 20070208, end: 20070501

REACTIONS (1)
  - IDIOPATHIC THROMBOCYTOPENIC PURPURA [None]
